FAERS Safety Report 5690532-0 (Version None)
Quarter: 2008Q1

REPORT INFORMATION
  Report Type: 
  Country: None (occurrence: None)
  Receive Date: 20080331
  Receipt Date: 20080331
  Transmission Date: 20080703
  Serious: No
  Sender: FDA-Public Use
  Company Number: None

PATIENT
  Sex: Female
  Weight: 86.1834 kg

DRUGS (1)
  1. COREG CR [Suspect]
     Indication: HYPERTENSION
     Dosage: 40 MG 1 PER DAY PO
     Route: 048
     Dates: start: 20080304, end: 20080310

REACTIONS (2)
  - DRUG INEFFECTIVE [None]
  - TREMOR [None]
